FAERS Safety Report 5248020-1 (Version None)
Quarter: 2007Q1

REPORT INFORMATION
  Report Type: 
  Country: None (occurrence: None)
  Receive Date: 20070227
  Receipt Date: 20070223
  Transmission Date: 20070707
  Serious: Yes (Hospitalization, Other)
  Sender: FDA-Public Use
  Company Number: US-BRISTOL-MYERS SQUIBB COMPANY-13691464

PATIENT
  Age: 76 Year
  Sex: Male
  Weight: 90 kg

DRUGS (7)
  1. COUMADIN [Suspect]
     Indication: THROMBOSIS
     Dates: start: 20060401, end: 20061101
  2. PREDNISONE [Suspect]
     Indication: ECZEMA
     Dosage: 5-20MG DAILY
     Route: 048
     Dates: start: 19950101, end: 20061101
  3. AZATHIOPRINE [Suspect]
     Dosage: 300MG TO 100MG
     Route: 048
     Dates: start: 19950101
  4. ACTONEL [Suspect]
     Indication: OSTEOPOROSIS
     Dates: start: 20060401, end: 20061101
  5. FOSAMAX [Concomitant]
     Indication: OSTEOPOROSIS
     Dates: start: 20060401, end: 20060401
  6. CLOBETASOL PROPIONATE [Concomitant]
     Dates: start: 20060826
  7. BONIVA [Concomitant]
     Dates: start: 20061201

REACTIONS (5)
  - CLAVICLE FRACTURE [None]
  - DYSPHAGIA [None]
  - LARGE INTESTINAL HAEMORRHAGE [None]
  - OESOPHAGEAL HAEMORRHAGE [None]
  - SKIN CANCER [None]
